FAERS Safety Report 7712833-4 (Version None)
Quarter: 2011Q3

REPORT INFORMATION
  Report Type: 
  Country: None (occurrence: None)
  Receive Date: 20110826
  Receipt Date: 20110816
  Transmission Date: 20111222
  Serious: Yes (Other)
  Sender: FDA-Public Use
  Company Number: PHEH2009US06720

PATIENT
  Sex: Male

DRUGS (9)
  1. FOLIC ACID [Concomitant]
  2. ALLOPURINOL [Concomitant]
  3. ASPIRIN [Concomitant]
  4. BUMEX [Concomitant]
  5. CENTRUM SILVER [Concomitant]
  6. EXJADE [Suspect]
     Indication: LYMPHOMA
     Dosage: 2000 MG, QD
     Route: 048
     Dates: start: 20090610, end: 20090618
  7. POTASSIUM [Concomitant]
  8. FOSINOPRIL SODIUM [Concomitant]
  9. EXJADE [Suspect]
     Dosage: 500 MG, QD
     Route: 048

REACTIONS (3)
  - MACULAR DEGENERATION [None]
  - DIARRHOEA [None]
  - HEARING IMPAIRED [None]
